FAERS Safety Report 4835430-7 (Version None)
Quarter: 2005Q4

REPORT INFORMATION
  Report Type: 
  Country: None (occurrence: None)
  Receive Date: 20051118
  Receipt Date: 20050906
  Transmission Date: 20060501
  Serious: Yes (Life-Threatening)
  Sender: FDA-Public Use
  Company Number: GXKR2005CA01572

PATIENT
  Age: 64 Year
  Sex: Female

DRUGS (7)
  1. VITAMIN K1 (NGX) (PHYTOMENADIONE)INJECTION, 10 MG/ML [Suspect]
     Dosage: 10 MG/ML, INTRAVENOUS
     Route: 042
     Dates: start: 20050901, end: 20050901
  2. DEMEROL [Concomitant]
  3. GRAVOL TAB [Concomitant]
  4. HEAPARIN (HEPARIN) [Concomitant]
  5. BENDADRYL (DIPHENHYDRAMINE HYDROCHLORIDE) [Concomitant]
  6. ATIVAN [Concomitant]
  7. FAMOTIDINE [Concomitant]

REACTIONS (5)
  - BLOOD PRESSURE DECREASED [None]
  - DYSPNOEA [None]
  - HEART RATE INCREASED [None]
  - INFUSION RELATED REACTION [None]
  - PHARYNGEAL OEDEMA [None]
